FAERS Safety Report 9970307 (Version 1)
Quarter: 2014Q1

REPORT INFORMATION
  Report Type: Spontaneous
  Country: US (occurrence: US)
  Receive Date: 20140306
  Receipt Date: 20140306
  Transmission Date: 20141002
  Serious: Yes (Hospitalization)
  Sender: FDA-Public Use
  Company Number: US-BRISTOL-MYERS SQUIBB COMPANY-20265625

PATIENT
  Age: 52 Year
  Sex: Male
  Weight: 68.03 kg

DRUGS (15)
  1. REYATAZ [Suspect]
  2. PRAVASTATIN SODIUM [Concomitant]
  3. TRUVADA [Concomitant]
     Dosage: 1DF=200-300
  4. NORVIR [Concomitant]
  5. COUMADIN [Concomitant]
  6. COREG [Concomitant]
  7. FENOFIBRATE [Concomitant]
  8. MYFORTIC [Concomitant]
  9. PREDNISONE [Concomitant]
  10. NEXIUM [Concomitant]
  11. PROGRAF [Concomitant]
  12. MULTIVITAMIN [Concomitant]
  13. CALCIUM CITRATE [Concomitant]
  14. VITAMIN D [Concomitant]
  15. DRISDOL [Concomitant]
     Dosage: TABS

REACTIONS (4)
  - Renal transplant [Unknown]
  - Coronary artery bypass [Unknown]
  - Myalgia [Unknown]
  - Inappropriate schedule of drug administration [Unknown]
